FAERS Safety Report 21804347 (Version 1)
Quarter: 2023Q1

REPORT INFORMATION
  Report Type: Spontaneous
  Country: US (occurrence: US)
  Receive Date: 20230102
  Receipt Date: 20230102
  Transmission Date: 20230417
  Serious: Yes (Other)
  Sender: FDA-Public Use
  Company Number: US-BEH-2022153703

PATIENT
  Age: 60 Year
  Sex: Female

DRUGS (2)
  1. HIZENTRA [Suspect]
     Active Substance: HUMAN IMMUNOGLOBULIN G
     Indication: Polymyositis
     Dosage: 40 GRAM, QW
     Route: 058
     Dates: start: 202102
  2. HIZENTRA [Suspect]
     Active Substance: HUMAN IMMUNOGLOBULIN G
     Indication: Chronic inflammatory demyelinating polyradiculoneuropathy

REACTIONS (4)
  - COVID-19 [Unknown]
  - Weight decreased [Unknown]
  - Dyspnoea [Unknown]
  - Swelling [Unknown]

NARRATIVE: CASE EVENT DATE: 20221101
